FAERS Safety Report 9057503 (Version 3)
Quarter: 2013Q2

REPORT INFORMATION
  Report Type: Spontaneous
  Country: US (occurrence: US)
  Receive Date: 20130204
  Receipt Date: 20130604
  Transmission Date: 20140414
  Serious: Yes (Hospitalization, Other)
  Sender: FDA-Public Use
  Company Number: US-PFIZER INC-2013038708

PATIENT
  Age: 60 Year
  Sex: Female
  Weight: 66 kg

DRUGS (18)
  1. PREMPRO [Suspect]
     Indication: MENOPAUSAL SYMPTOMS
     Dosage: 1 DF (0.3/ 1.5MG), 1X/DAY
     Route: 048
     Dates: end: 201109
  2. SINGULAIR [Concomitant]
     Dosage: 10 MG, 1X/DAY IN THE EVENING
     Route: 048
  3. FLONASE [Concomitant]
     Dosage: (50UG/ACT), 2 SPRAYS IN EACH NOSTRIL ONCE A DAY
     Route: 045
  4. VITAMIN D [Concomitant]
     Dosage: 1 TABLET (1000 IU), 1X/DAY
     Route: 048
  5. ALLEGRA [Concomitant]
     Dosage: 1 TABLET (180 MG), 1X/DAY
     Route: 048
  6. AMBIEN [Concomitant]
     Dosage: 10 MG, 1 TABLET AT BEDTIME AS NEEDED 1X/DAY
     Route: 048
  7. PROVENTIL HFA [Concomitant]
     Dosage: 2 PUFFS (108 UG) AS NEEDED, DISPENSE 2 INHALATION EVERY 4 HRS
  8. ZOCOR [Concomitant]
     Dosage: 20 MG, 1X/DAY, 1 TABLET IN THE EVENING ORALLY ONCE A DAY
     Route: 048
  9. ADVAIR DISKUS [Concomitant]
     Dosage: 1 PUFF (250-50UG/DOSE), 2X/DAY
     Route: 055
  10. LOSARTAN POTASSIUM W/HYDROCHLOROTHIAZIDE [Concomitant]
     Dosage: 2 TABLETS (50-12.5MG), ONCE A DAY
     Route: 048
  11. EVISTA [Concomitant]
     Dosage: 60 MG, 1X/DAY
     Route: 048
  12. ZYRTEC [Concomitant]
     Dosage: 10 MG, 1X/DAY
  13. METHYLPREDNISONE [Concomitant]
     Dosage: 4 MG, UNK
  14. LEVAQUIN [Concomitant]
     Dosage: UNK
  15. MUCINEX DM [Concomitant]
     Dosage: PM
  16. PRO-AIR [Concomitant]
     Dosage: UNK
  17. ANGELIQ [Concomitant]
     Dosage: (1/ 0.5MG), 1X/DAY
  18. IRON [Concomitant]
     Dosage: 325 MG, 2X/DAY

REACTIONS (1)
  - Intraductal proliferative breast lesion [Recovered/Resolved]
